FAERS Safety Report 9726179 (Version 2)
Quarter: 2013Q4

REPORT INFORMATION
  Report Type: Spontaneous
  Country: US (occurrence: US)
  Receive Date: 20131203
  Receipt Date: 20131203
  Transmission Date: 20140711
  Serious: Yes (Hospitalization)
  Sender: FDA-Public Use
  Company Number: US-FRI-1000050857

PATIENT
  Age: 65 Year
  Sex: Female
  Weight: 63.5 kg

DRUGS (20)
  1. VIIBRYD [Suspect]
     Indication: MAJOR DEPRESSION
     Dosage: 10 MG
     Route: 048
     Dates: start: 20130703, end: 2013
  2. VIIBRYD [Suspect]
     Dosage: 20 MG
     Route: 048
     Dates: start: 2013, end: 2013
  3. VIIBRYD [Suspect]
     Dosage: 30 MG
     Route: 048
     Dates: start: 2013, end: 20130916
  4. VIIBRYD [Suspect]
     Indication: MAJOR DEPRESSION
     Dosage: 40 MG
     Route: 048
     Dates: start: 20130917, end: 201310
  5. VIIBRYD [Suspect]
     Dosage: 20 MG
     Route: 048
     Dates: start: 201310
  6. DEXTROSTAT [Suspect]
     Dosage: 60 MG
     Route: 048
  7. ELAVIL [Suspect]
     Dosage: 50 MG AT BEDTIME
     Route: 048
  8. HYDROCODONE/ACETAMINOPHEN [Concomitant]
     Indication: PAIN
     Dosage: 30 ML EVERY FOUR HOURS AS NEEDED
     Route: 048
  9. RESTORIL [Concomitant]
     Dosage: 30-60 MG AT BEDTIME AS NEEDED
     Route: 048
  10. WELCHOL [Concomitant]
     Indication: DIARRHOEA
     Dosage: 625 MG TWICE DAILY AS NEEDED
     Route: 048
  11. METFORMIN [Concomitant]
     Dosage: 1000 MG IN AM, 1000 MG IN PM
     Route: 048
  12. CARISOPRODOL [Concomitant]
     Dosage: 350 MG THREE TIMES DAILY AS NEEDED
     Route: 048
  13. SIMVASTATIN [Concomitant]
     Dosage: 20 MG AT BEDTIME
     Route: 048
  14. OMEPRAZOLE [Concomitant]
     Dosage: 40 MG
     Route: 048
  15. ATIVAN [Concomitant]
     Indication: ANXIETY
     Dosage: 0.5 MG THREE TIMES DAILY AS NEEDED
     Route: 048
  16. PROLIA [Concomitant]
     Indication: OSTEOGENESIS IMPERFECTA
     Dosage: EVERY SIX MONTHS
  17. DILTIAZEM [Concomitant]
     Dosage: 120 MG
     Route: 048
  18. LAMOTRIGINE [Concomitant]
     Indication: DEPRESSION
     Dosage: 300 MG
     Route: 048
  19. MVI [Concomitant]
  20. VITAMIN B6 [Concomitant]

REACTIONS (2)
  - Serotonin syndrome [Recovered/Resolved]
  - Impaired driving ability [Recovered/Resolved]
